FAERS Safety Report 9346908 (Version 5)
Quarter: 2013Q4

REPORT INFORMATION
  Report Type: Report from Study
  Country: CA (occurrence: CA)
  Receive Date: 20130613
  Receipt Date: 20131101
  Transmission Date: 20140711
  Serious: Yes (Hospitalization, Other)
  Sender: FDA-Public Use
  Company Number: PHHY2013CA059981

PATIENT
  Age: 68 Year
  Sex: Female

DRUGS (5)
  1. TASIGNA [Suspect]
     Indication: CHRONIC MYELOID LEUKAEMIA
     Dosage: 400 MG, BID
     Route: 048
     Dates: start: 20130603, end: 20130610
  2. SPRYCEL//DASATINIB [Suspect]
     Indication: CHRONIC MYELOID LEUKAEMIA
     Dosage: UNK
  3. DIOVAN [Concomitant]
     Dosage: 160 MG, QD
  4. HYDROCHLOROTHIAZIDE [Concomitant]
     Dosage: 25 MG, QD
  5. B12-VITAMIIN [Concomitant]

REACTIONS (8)
  - Aphagia [Recovering/Resolving]
  - Fluid retention [Unknown]
  - Blood sodium decreased [Recovering/Resolving]
  - Full blood count decreased [Recovering/Resolving]
  - Platelet count decreased [Recovering/Resolving]
  - Ascites [Unknown]
  - Oedema peripheral [Unknown]
  - Pleural effusion [Unknown]
